FAERS Safety Report 6702829-3 (Version None)
Quarter: 2010Q2

REPORT INFORMATION
  Report Type: 
  Country: None (occurrence: None)
  Receive Date: 20100429
  Receipt Date: 20100429
  Transmission Date: 20101027
  Serious: Yes (Hospitalization)
  Sender: FDA-Public Use
  Company Number: None

PATIENT
  Age: 4 Year
  Sex: Male
  Weight: 17.27 kg

DRUGS (1)
  1. VANCOMYCIN [Suspect]
     Indication: OTITIS MEDIA
     Dosage: 250MG Q6H IV ; X1 DOSE
     Route: 042
     Dates: start: 20100407, end: 20100407

REACTIONS (4)
  - DYSPHONIA [None]
  - ERYTHEMA [None]
  - EYE SWELLING [None]
  - RASH MACULAR [None]
